FAERS Safety Report 5934351-6 (Version None)
Quarter: 2008Q4

REPORT INFORMATION
  Report Type: 
  Country: None (occurrence: None)
  Receive Date: 20081029
  Receipt Date: 20081021
  Transmission Date: 20090506
  Serious: Yes (Other)
  Sender: FDA-Public Use
  Company Number: PHHY2008JP25757

PATIENT
  Age: 65 Year
  Sex: Male

DRUGS (2)
  1. DIOVAN [Suspect]
     Route: 048
  2. NORVASC [Concomitant]

REACTIONS (1)
  - VENTRICULAR EXTRASYSTOLES [None]
